FAERS Safety Report 24116878 (Version 3)
Quarter: 2024Q4

REPORT INFORMATION
  Report Type: Spontaneous
  Country: US (occurrence: US)
  Receive Date: 20240722
  Receipt Date: 20241018
  Transmission Date: 20250114
  Serious: No
  Sender: ROCHE
  Company Number: US-ROCHE-3573590

PATIENT
  Sex: Female
  Weight: 58.0 kg

DRUGS (1)
  1. ACTIVASE [Suspect]
     Active Substance: ALTEPLASE
     Indication: Thrombosis
     Route: 065

REACTIONS (5)
  - Inappropriate schedule of product administration [Unknown]
  - Product complaint [Unknown]
  - Off label use [Unknown]
  - No adverse event [Unknown]
  - Product complaint [Unknown]

NARRATIVE: CASE EVENT DATE: 20240524
